FAERS Safety Report 7213095-7 (Version None)
Quarter: 2011Q1

REPORT INFORMATION
  Report Type: 
  Country: None (occurrence: None)
  Receive Date: 20110106
  Receipt Date: 20101004
  Transmission Date: 20110831
  Serious: No
  Sender: FDA-Public Use
  Company Number: US-BAYER-201022145BCC

PATIENT
  Sex: Female
  Weight: 72.727 kg

DRUGS (2)
  1. ALEVE [Suspect]
     Dosage: UNK
     Dates: start: 20101002, end: 20101002
  2. FISH OIL, HYDROGENATED [Concomitant]

REACTIONS (1)
  - DRUG ADMINISTRATION ERROR [None]
